FAERS Safety Report 6609643-8 (Version None)
Quarter: 2010Q1

REPORT INFORMATION
  Report Type: 
  Country: None (occurrence: None)
  Receive Date: 20100302
  Receipt Date: 20100215
  Transmission Date: 20100710
  Serious: Yes (Hospitalization)
  Sender: FDA-Public Use
  Company Number: JP-ASTRAZENECA-2009SE14051

PATIENT
  Age: 70 Year
  Sex: Male
  Weight: 74 kg

DRUGS (4)
  1. CANDESARTAN CILEXETIL [Suspect]
     Indication: HYPERTENSION
     Route: 048
     Dates: start: 20060812, end: 20071101
  2. CANDESARTAN CILEXETIL [Suspect]
     Route: 048
     Dates: start: 20090109
  3. CALCIUM CHANNEL BLOCKERS [Concomitant]
     Indication: HYPERTENSION
     Route: 065
  4. DIBETOS [Concomitant]
     Indication: DIABETES MELLITUS
     Route: 048
     Dates: start: 20080319

REACTIONS (2)
  - CEREBELLAR HAEMORRHAGE [None]
  - DIABETES MELLITUS INADEQUATE CONTROL [None]
